FAERS Safety Report 5332164-X (Version None)
Quarter: 2007Q2

REPORT INFORMATION
  Report Type: 
  Country: None (occurrence: None)
  Receive Date: 20070523
  Receipt Date: 20070518
  Transmission Date: 20071010
  Serious: Yes (Hospitalization, Disabling, Other)
  Sender: FDA-Public Use
  Company Number: PR-ASTRAZENECA-2007UW06829

PATIENT
  Age: 26304 Day
  Sex: Male

DRUGS (16)
  1. METOPROLOL SUCCINATE [Suspect]
     Route: 048
  2. AZD6140 CODE NOT BROKEN [Suspect]
     Indication: ACUTE CORONARY SYNDROME
     Dates: start: 20070309
  3. NORTRIPTYLINE HCL [Concomitant]
     Dates: start: 20060530, end: 20070328
  4. SIMVASTATIN [Concomitant]
     Dates: start: 20060818, end: 20070328
  5. HUMULIN N [Concomitant]
     Dates: start: 20061031
  6. REGULAR INSULIN [Concomitant]
     Dates: start: 20061028
  7. LISINOPRIL [Concomitant]
     Dates: start: 20060602
  8. NYSTATIN [Concomitant]
     Dates: start: 20070125
  9. ACETYLSALIC ACID [Concomitant]
     Dates: start: 20070309, end: 20070407
  10. ISOSORBIDE [Concomitant]
     Dates: start: 20070312
  11. LISINOPRIL [Concomitant]
     Route: 048
     Dates: start: 20060602
  12. ROSUVASTATIN [Concomitant]
     Dates: start: 20070328
  13. ENOXAPARIN SODIUM [Concomitant]
     Dates: start: 20070309, end: 20070314
  14. FUROSEMIDE [Concomitant]
     Dates: start: 20070309
  15. OMEPRAZOLE [Concomitant]
     Dates: start: 20070309
  16. HALOPERIDOL [Concomitant]
     Dates: start: 20070313

REACTIONS (2)
  - PERIPHERAL ISCHAEMIA [None]
  - SKIN NECROSIS [None]
